FAERS Safety Report 18675172 (Version 1)
Quarter: 2020Q4

REPORT INFORMATION
  Report Type: Spontaneous
  Country: US (occurrence: US)
  Receive Date: 20201228
  Receipt Date: 20201228
  Transmission Date: 20210114
  Serious: Yes (Other)
  Sender: FDA-Public Use
  Company Number: None

PATIENT
  Age: 67 Year
  Sex: Female

DRUGS (8)
  1. LEVOCETIRIZINE [Concomitant]
     Active Substance: LEVOCETIRIZINE
  2. CLINDAMYCIN 1% LOTION [Concomitant]
  3. REPATHA [Suspect]
     Active Substance: EVOLOCUMAB
     Indication: HYPERLIPIDAEMIA
     Dosage: ?          OTHER FREQUENCY:Q 2 WEEKS;?
     Route: 058
     Dates: start: 20200303
  4. FLUTICASONE NASAL SPRAY [Concomitant]
     Active Substance: FLUTICASONE
  5. TEKTURNA 300MG [Concomitant]
  6. VITAMIN D3 2000 UNITS [Concomitant]
  7. CICLOPIROX 8% NAIL SOLUTION [Concomitant]
  8. AMMONIUM LACTATE 12% LOTION [Concomitant]

REACTIONS (3)
  - Cough [None]
  - Rhinorrhoea [None]
  - Pruritus [None]

NARRATIVE: CASE EVENT DATE: 20201228
